FAERS Safety Report 11715910 (Version 2)
Quarter: 2015Q4

REPORT INFORMATION
  Report Type: Spontaneous
  Country: US (occurrence: US)
  Receive Date: 20151104
  Receipt Date: 20151110
  Transmission Date: 20160304
  Serious: No
  Sender: FDA-Public Use
  Company Number: US-ELI_LILLY_AND_COMPANY-US201105008813

PATIENT
  Sex: Female

DRUGS (1)
  1. FORTEO [Suspect]
     Active Substance: TERIPARATIDE
     Indication: OSTEOPOROSIS
     Dosage: UNK, UNK
     Route: 065

REACTIONS (5)
  - Pain in extremity [Unknown]
  - Spinal fracture [Unknown]
  - Open fracture [Unknown]
  - Intentional product misuse [Not Recovered/Not Resolved]
  - Arthritis [Unknown]
